FAERS Safety Report 18080169 (Version 1)
Quarter: 2020Q3

REPORT INFORMATION
  Report Type: Spontaneous
  Country: US (occurrence: US)
  Receive Date: 20200728
  Receipt Date: 20200728
  Transmission Date: 20201103
  Serious: Yes (Hospitalization)
  Sender: FDA-Public Use
  Company Number: US-MYLANLABS-2020M1067898

PATIENT
  Age: 4 Year
  Sex: Male

DRUGS (11)
  1. DUPILUMAB [Suspect]
     Active Substance: DUPILUMAB
     Dosage: 4 MILLIGRAM/KILOGRAM, QW
     Route: 065
  2. SERTRALINE [Suspect]
     Active Substance: SERTRALINE HYDROCHLORIDE
     Indication: COCCIDIOIDOMYCOSIS
     Dosage: UNK
     Route: 065
  3. INTERFERON GAMMA NOS [Suspect]
     Active Substance: INTERFERON GAMMA
     Dosage: 150 MICROGRAM, Q3W,150MUG PER SQUARE METER THREE TIMES PER WEEK.
     Route: 058
  4. DUPILUMAB [Suspect]
     Active Substance: DUPILUMAB
     Indication: COCCIDIOIDOMYCOSIS
     Dosage: 2 MILLIGRAM/KILOGRAM, QW
     Route: 065
  5. FLUCONAZOLE. [Suspect]
     Active Substance: FLUCONAZOLE
     Indication: DISSEMINATED COCCIDIOIDOMYCOSIS
     Dosage: UNK
     Route: 065
  6. AMPHOTERICIN B, LIPOSOME [Suspect]
     Active Substance: AMPHOTERICIN B
     Indication: COCCIDIOIDOMYCOSIS
     Dosage: (INITIAL DOSE NOT STATED)
     Route: 065
  7. DUPILUMAB [Suspect]
     Active Substance: DUPILUMAB
     Dosage: 6 MILLIGRAM/KILOGRAM, QW
     Route: 065
  8. INTERFERON GAMMA NOS [Suspect]
     Active Substance: INTERFERON GAMMA
     Indication: COCCIDIOIDOMYCOSIS
     Dosage: 50 MICROGRAM, Q3W,50 MICRO GRAM PER SQUARE METER OF BODY?SURFACE AREA THREE TIMES PER WEEK
     Route: 058
  9. AMPHOTERICIN B, LIPOSOME [Suspect]
     Active Substance: AMPHOTERICIN B
     Dosage: HIGH DOSE
     Route: 065
  10. POSACONAZOLE [Suspect]
     Active Substance: POSACONAZOLE
     Indication: COCCIDIOIDOMYCOSIS
     Dosage: UNK
     Route: 065
  11. INTERFERON GAMMA NOS [Suspect]
     Active Substance: INTERFERON GAMMA
     Dosage: 200 MICROGRAM, QW,200 MICRO GRAM PER SQUARE METER OF BODY?SURFACE AREA THREE TIMES PER WEEK
     Route: 058

REACTIONS (2)
  - Drug ineffective [Unknown]
  - Off label use [Unknown]
